FAERS Safety Report 17108862 (Version 1)
Quarter: 2019Q4

REPORT INFORMATION
  Report Type: Other
  Country: US (occurrence: US)
  Receive Date: 20191204
  Receipt Date: 20191204
  Transmission Date: 20200122
  Serious: Yes (Death)
  Sender: FDA-Public Use
  Company Number: US-DEXPHARM-20191063

PATIENT
  Age: 44 Year
  Sex: Female

DRUGS (9)
  1. AMITRIPTYLINE [Suspect]
     Active Substance: AMITRIPTYLINE
  2. LEVETIRACETAM. [Suspect]
     Active Substance: LEVETIRACETAM
  3. OXYCODONE [Suspect]
     Active Substance: OXYCODONE
  4. GABAPENTIN. [Suspect]
     Active Substance: GABAPENTIN
  5. NORFLUOXETINE [Suspect]
     Active Substance: NORFLUOXETINE
  6. 7-AMINOCLONAZEPAM [Suspect]
     Active Substance: 7-AMINOCLONAZEPAM
  7. NORTRIPTYLINE [Suspect]
     Active Substance: NORTRIPTYLINE
  8. CLONAZEPAM. [Suspect]
     Active Substance: CLONAZEPAM
  9. FLUOXETINE [Suspect]
     Active Substance: FLUOXETINE HYDROCHLORIDE

REACTIONS (1)
  - Toxicity to various agents [Fatal]
